FAERS Safety Report 13069984 (Version 1)
Quarter: 2016Q4

REPORT INFORMATION
  Report Type: Spontaneous
  Country: US (occurrence: US)
  Receive Date: 20161228
  Receipt Date: 20161228
  Transmission Date: 20170207
  Serious: No
  Sender: FDA-Public Use
  Company Number: US-GLAXOSMITHKLINE-US2016GSK192097

PATIENT
  Age: 62 Year
  Sex: Male

DRUGS (2)
  1. TANZEUM [Suspect]
     Active Substance: ALBIGLUTIDE
     Indication: TYPE 2 DIABETES MELLITUS
     Dosage: 30 MG, WE
     Route: 042
     Dates: start: 201603
  2. TANZEUM [Suspect]
     Active Substance: ALBIGLUTIDE
     Dosage: 50 UNK, UNK
     Route: 042
     Dates: start: 201607

REACTIONS (4)
  - Device leakage [Unknown]
  - Device use error [Unknown]
  - Rash [Unknown]
  - Rash papular [Unknown]

NARRATIVE: CASE EVENT DATE: 201603
